FAERS Safety Report 11563162 (Version 1)
Quarter: 2015Q3

REPORT INFORMATION
  Report Type: Spontaneous
  Country: US (occurrence: US)
  Receive Date: 20150928
  Receipt Date: 20150928
  Transmission Date: 20151125
  Serious: Yes (Hospitalization, Other)
  Sender: FDA-Public Use
  Company Number: US-VERTEX PHARMACEUTICALS-2015-004049

PATIENT

DRUGS (1)
  1. ORKAMBI [Suspect]
     Active Substance: IVACAFTOR\LUMACAFTOR
     Indication: CYSTIC FIBROSIS
     Route: 048

REACTIONS (11)
  - Vomiting [Unknown]
  - Nausea [Unknown]
  - Pericarditis [Unknown]
  - Clostridium test positive [Unknown]
  - Rash [Unknown]
  - Asthma [Unknown]
  - Neuropathy peripheral [Unknown]
  - Haemoptysis [Unknown]
  - Fatigue [Unknown]
  - Pneumothorax [Unknown]
  - Chest discomfort [Unknown]
